FAERS Safety Report 21594778 (Version 2)
Quarter: 2023Q1

REPORT INFORMATION
  Report Type: Spontaneous
  Country: US (occurrence: US)
  Receive Date: 20221115
  Receipt Date: 20230118
  Transmission Date: 20230418
  Serious: No
  Sender: FDA-Public Use
  Company Number: US-GSKCCFUS-Case-01550744_AE-87747

PATIENT
  Sex: Male

DRUGS (1)
  1. BREO ELLIPTA [Suspect]
     Active Substance: FLUTICASONE FUROATE\VILANTEROL TRIFENATATE
     Indication: Cough
     Dosage: 1 PUFF(S), QD 100/25MCG
     Route: 055
     Dates: start: 20221024

REACTIONS (5)
  - Thirst [Unknown]
  - Stomatitis [Unknown]
  - Oral pain [Unknown]
  - Dry mouth [Unknown]
  - Product use in unapproved indication [Unknown]
